FAERS Safety Report 17430268 (Version 1)
Quarter: 2020Q1

REPORT INFORMATION
  Report Type: Spontaneous
  Country: US (occurrence: US)
  Receive Date: 20200215
  Receipt Date: 20200215
  Transmission Date: 20200409
  Serious: No
  Sender: FDA-Public Use
  Company Number: None

PATIENT
  Age: 23 Year
  Sex: Female
  Weight: 72 kg

DRUGS (2)
  1. ELURYNG [Suspect]
     Active Substance: ETHINYL ESTRADIOL\ETONOGESTREL
     Indication: ACNE
     Dosage: ?          QUANTITY:1 RING INSERTED;OTHER FREQUENCY:ONCE EVERY 3 WEEKS;?
     Route: 067
     Dates: start: 20200215, end: 20200215
  2. ELTROMBOPAG [Concomitant]
     Active Substance: ELTROMBOPAG

REACTIONS (4)
  - Complication associated with device [None]
  - Headache [None]
  - Feeling abnormal [None]
  - Fatigue [None]

NARRATIVE: CASE EVENT DATE: 20200215
